APPROVED DRUG PRODUCT: IBUPROFEN
Active Ingredient: IBUPROFEN
Strength: EQ 200MG FREE ACID AND POTASSIUM SALT
Dosage Form/Route: CAPSULE;ORAL
Application: A204469 | Product #001
Applicant: ONESOURCE SPECIALTY PTE LTD
Approved: Mar 28, 2018 | RLD: No | RS: No | Type: OTC